FAERS Safety Report 10728213 (Version 2)
Quarter: 2015Q1

REPORT INFORMATION
  Report Type: Spontaneous
  Country: JP (occurrence: JP)
  Receive Date: 20150121
  Receipt Date: 20150201
  Transmission Date: 20150721
  Serious: Yes (Hospitalization, Other)
  Sender: FDA-Public Use
  Company Number: PHHY2015JP005771

PATIENT
  Age: 75 Year
  Sex: Female

DRUGS (11)
  1. MEMARY [Concomitant]
     Active Substance: MEMANTINE HYDROCHLORIDE
     Dosage: 5 MG, QD
     Route: 048
     Dates: start: 20140619
  2. EXELON PATCH [Suspect]
     Active Substance: RIVASTIGMINE
     Dosage: 9 MG DAILY (4.6MG/24 HOURS) RIVASTIGMINE BASE
     Route: 062
     Dates: start: 20140327, end: 20140426
  3. EXELON PATCH [Suspect]
     Active Substance: RIVASTIGMINE
     Dosage: 9 MG DAILY (4.6MG/24 HOURS) RIVASTIGMINE BASE
     Route: 062
     Dates: start: 20140619
  4. EXELON PATCH [Suspect]
     Active Substance: RIVASTIGMINE
     Indication: DEMENTIA ALZHEIMER^S TYPE
     Dosage: 4.5 MG DAILY (1.9 MG/24 HOURS) RIVASTIGMINE BASE
     Route: 062
     Dates: start: 20140130, end: 20140326
  5. EXELON PATCH [Suspect]
     Active Substance: RIVASTIGMINE
     Dosage: 4.5 MG DAILY (1.9 MG/24 HOURS) RIVASTIGMINE BASE
     Route: 062
     Dates: start: 20140227, end: 20140326
  6. EXELON PATCH [Suspect]
     Active Substance: RIVASTIGMINE
     Dosage: 13.5MG DAILY (6.9 MG/24 HOURS) RIVASTIGMINE BASE
     Route: 062
     Dates: start: 20140427, end: 20140525
  7. MEMARY [Concomitant]
     Active Substance: MEMANTINE HYDROCHLORIDE
     Dosage: 5 MG, QD
     Route: 048
     Dates: start: 20140526
  8. EXELON PATCH [Suspect]
     Active Substance: RIVASTIGMINE
     Dosage: 13.5MG AND 9 MG WERE USED ALTERNATIVELY (PATCH5 (CM2) AND PATCH7.5 (CM2))
     Route: 062
     Dates: start: 20140526, end: 20140618
  9. MEMARY [Concomitant]
     Active Substance: MEMANTINE HYDROCHLORIDE
     Indication: DEMENTIA ALZHEIMER^S TYPE
     Dosage: 5 MG, QD
     Route: 048
     Dates: start: 20140227
  10. EXELON PATCH [Suspect]
     Active Substance: RIVASTIGMINE
     Dosage: 13.5MG DAILY (6.9 MG/24 HOURS) RIVASTIGMINE BASE
     Route: 062
     Dates: start: 20140526, end: 20140618
  11. MEMARY [Concomitant]
     Active Substance: MEMANTINE HYDROCHLORIDE
     Dosage: 5 MG, QD
     Route: 048
     Dates: start: 20140327

REACTIONS (2)
  - Cerebral haemorrhage [Not Recovered/Not Resolved]
  - Anger [Not Recovered/Not Resolved]

NARRATIVE: CASE EVENT DATE: 201501
